FAERS Safety Report 15367535 (Version 1)
Quarter: 2018Q3

REPORT INFORMATION
  Report Type: Spontaneous
  Country: BR (occurrence: BR)
  Receive Date: 20180910
  Receipt Date: 20180910
  Transmission Date: 20181010
  Serious: Yes (Other)
  Sender: FDA-Public Use
  Company Number: BR-BAYER-2018-163930

PATIENT
  Sex: Female

DRUGS (1)
  1. STIVARGA [Suspect]
     Active Substance: REGORAFENIB
     Indication: METASTATIC NEOPLASM

REACTIONS (7)
  - Intestinal resection [None]
  - Gastrectomy [None]
  - Lymphadenectomy [None]
  - Product use in unapproved indication [None]
  - Off label use [None]
  - Terminal state [None]
  - Pancreatectomy [None]
